FAERS Safety Report 5214427-1 (Version None)
Quarter: 2007Q1

REPORT INFORMATION
  Report Type: 
  Country: None (occurrence: None)
  Receive Date: 20070116
  Receipt Date: 20070102
  Transmission Date: 20070707
  Serious: Yes (Hospitalization)
  Sender: FDA-Public Use
  Company Number: 220001M07USA

PATIENT
  Age: 3 Year
  Sex: Female

DRUGS (3)
  1. SAIZEN [Suspect]
     Indication: GROWTH HORMONE DEFICIENCY
     Dosage: 0.5 MG, 1 IN 1 DAYS, SUBCUTANEOUS
     Route: 058
  2. SYNTHROID [Concomitant]
  3. HYDROCORTISONE [Concomitant]

REACTIONS (1)
  - INCORRECT DOSE ADMINISTERED [None]
